FAERS Safety Report 25581209 (Version 1)
Quarter: 2025Q3

REPORT INFORMATION
  Report Type: Spontaneous
  Country: US (occurrence: US)
  Receive Date: 20250718
  Receipt Date: 20250718
  Transmission Date: 20251021
  Serious: No
  Sender: NOVO NORDISK
  Company Number: US-NOVOPROD-1459776

PATIENT

DRUGS (3)
  1. WEGOVY [Suspect]
     Active Substance: SEMAGLUTIDE
     Indication: Product used for unknown indication
  2. SAXENDA [Concomitant]
     Active Substance: LIRAGLUTIDE
     Indication: Gallbladder disorder
  3. SAXENDA [Concomitant]
     Active Substance: LIRAGLUTIDE
     Indication: Sleep apnoea syndrome

REACTIONS (1)
  - Anger [Not Recovered/Not Resolved]
